APPROVED DRUG PRODUCT: TESTOSTERONE
Active Ingredient: TESTOSTERONE
Strength: 1.62% (20.25MG/1.25GM ACTUATION)
Dosage Form/Route: GEL, METERED;TRANSDERMAL
Application: A204268 | Product #001 | TE Code: AB
Applicant: PADAGIS ISRAEL PHARMACEUTICALS LTD
Approved: Aug 4, 2015 | RLD: No | RS: No | Type: RX